FAERS Safety Report 5328762-X (Version None)
Quarter: 2007Q2

REPORT INFORMATION
  Report Type: 
  Country: None (occurrence: None)
  Receive Date: 20070516
  Receipt Date: 20070516
  Transmission Date: 20071010
  Serious: No
  Sender: FDA-Public Use
  Company Number: None

PATIENT
  Age: 34 Year
  Sex: Male
  Weight: 84.55 kg

DRUGS (2)
  1. SOLIRIS [Suspect]
     Indication: PAROXYSMAL NOCTURNAL HAEMOGLOBINURIA
     Dosage: 600 MG QW X 4; THEN QOW IV
     Route: 042
     Dates: start: 20070423, end: 20070423
  2. SOLIRIS [Suspect]
     Indication: PAROXYSMAL NOCTURNAL HAEMOGLOBINURIA
     Dosage: 600 MG QW X 4; THEN QOW IV
     Route: 042
     Dates: start: 20070430, end: 20070430

REACTIONS (3)
  - HEADACHE [None]
  - INFUSION RELATED REACTION [None]
  - TOOTHACHE [None]
